FAERS Safety Report 9373484 (Version 1)
Quarter: 2013Q2

REPORT INFORMATION
  Report Type: Report from Study
  Country: CA (occurrence: CA)
  Receive Date: 20130627
  Receipt Date: 20130627
  Transmission Date: 20140414
  Serious: Yes (Other)
  Sender: FDA-Public Use
  Company Number: CA-ABBOTT-13P-028-1108217-00

PATIENT
  Age: 41 Year
  Sex: Female

DRUGS (2)
  1. HUMIRA [Suspect]
     Indication: ANKYLOSING SPONDYLITIS
     Route: 058
     Dates: start: 20090629, end: 201210
  2. HUMIRA [Suspect]
     Route: 058
     Dates: start: 201302, end: 201305

REACTIONS (3)
  - Vasodilatation [Unknown]
  - Ovarian cyst [Unknown]
  - Postoperative wound infection [Recovered/Resolved]
